FAERS Safety Report 16970026 (Version 2)
Quarter: 2019Q4

REPORT INFORMATION
  Report Type: Spontaneous
  Country: CN (occurrence: CN)
  Receive Date: 20191029
  Receipt Date: 20191101
  Transmission Date: 20200122
  Serious: Yes (Other)
  Sender: FDA-Public Use
  Company Number: CN-BAYER-2019-194589

PATIENT
  Age: 61 Year
  Sex: Female

DRUGS (3)
  1. ULTRAVIST [Suspect]
     Active Substance: IOPROMIDE
     Indication: COMPUTERISED TOMOGRAM HEAD
     Dosage: 100 ML, ONCE
     Route: 042
     Dates: start: 20191024, end: 20191024
  2. ULTRAVIST [Suspect]
     Active Substance: IOPROMIDE
     Indication: COMPUTERISED TOMOGRAM
  3. ULTRAVIST [Suspect]
     Active Substance: IOPROMIDE
     Indication: ANGIOCARDIOGRAM

REACTIONS (6)
  - Unresponsive to stimuli [Recovering/Resolving]
  - Erythema [Recovered/Resolved]
  - Listless [Recovered/Resolved]
  - Blood pressure decreased [Recovering/Resolving]
  - Yawning [Recovered/Resolved]
  - Discomfort [None]

NARRATIVE: CASE EVENT DATE: 20191024
